FAERS Safety Report 12902323 (Version 3)
Quarter: 2016Q4

REPORT INFORMATION
  Report Type: Report from Study
  Country: US (occurrence: US)
  Receive Date: 20161102
  Receipt Date: 20161123
  Transmission Date: 20170207
  Serious: Yes (Other)
  Sender: FDA-Public Use
  Company Number: US-BAYER-2015-416366

PATIENT
  Age: 64 Year
  Sex: Female
  Weight: 117.1 kg

DRUGS (9)
  1. ADEMPAS [Suspect]
     Active Substance: RIOCIGUAT
     Indication: PULMONARY HYPERTENSION
     Dosage: UNK
     Dates: start: 20150821
  2. GABAPENTIN. [Suspect]
     Active Substance: GABAPENTIN
     Dosage: UNK
  3. PREDNISONE. [Suspect]
     Active Substance: PREDNISONE
  4. ADEMPAS [Suspect]
     Active Substance: RIOCIGUAT
     Indication: PULMONARY HYPERTENSION
     Dosage: 2.5 MG, TID
     Route: 048
  5. APIXABAN [Concomitant]
     Active Substance: APIXABAN
     Dosage: UNK
  6. ADEMPAS [Suspect]
     Active Substance: RIOCIGUAT
     Indication: PULMONARY HYPERTENSION
     Dosage: 1 MG, TID
     Route: 048
  7. ADEMPAS [Suspect]
     Active Substance: RIOCIGUAT
     Indication: PULMONARY HYPERTENSION
     Dosage: UNK
     Dates: start: 20160401
  8. ADEMPAS [Suspect]
     Active Substance: RIOCIGUAT
     Indication: PULMONARY HYPERTENSION
     Dosage: 2 MG, TID
     Route: 048
  9. ADEMPAS [Suspect]
     Active Substance: RIOCIGUAT
     Indication: PULMONARY HYPERTENSION
     Dosage: 2.5 MG, TID
     Route: 048
     Dates: start: 20160401

REACTIONS (34)
  - Neuropathy peripheral [None]
  - Peripheral swelling [None]
  - Blood glucose increased [None]
  - Dizziness [None]
  - Abdominal pain lower [None]
  - Joint swelling [None]
  - Alopecia [None]
  - Dizziness [Unknown]
  - Neck pain [Unknown]
  - Blood glucose increased [Unknown]
  - Chest pain [None]
  - Joint injury [None]
  - Pulmonary pain [Unknown]
  - Fatigue [None]
  - Pain [Unknown]
  - Insomnia [Unknown]
  - Blood pressure increased [Unknown]
  - Blood glucose abnormal [Unknown]
  - Dyspnoea [Unknown]
  - Vomiting [None]
  - Muscle spasms [None]
  - Pruritus [Unknown]
  - Adverse drug reaction [Unknown]
  - Blood pressure decreased [Unknown]
  - Intentional product misuse [Unknown]
  - Arthralgia [Unknown]
  - Product use issue [Unknown]
  - Unevaluable event [Unknown]
  - Diarrhoea [None]
  - Headache [Unknown]
  - Diarrhoea [Unknown]
  - Nausea [Unknown]
  - Back pain [Unknown]
  - Headache [None]

NARRATIVE: CASE EVENT DATE: 201508
